FAERS Safety Report 9804406 (Version 11)
Quarter: 2014Q3

REPORT INFORMATION
  Report Type: Spontaneous
  Country: US (occurrence: None)
  Receive Date: 20140106
  Receipt Date: 20140828
  Transmission Date: 20150326
  Serious: Yes (Hospitalization, Other)
  Sender: FDA-Public Use
  Company Number: ADR-2013-02364

PATIENT
  Sex: Female

DRUGS (1)
  1. LIORESAL [Suspect]
     Active Substance: BACLOFEN
     Indication: MUSCLE SPASTICITY
     Dosage: 29 UNITS/DAY

REACTIONS (18)
  - Post lumbar puncture syndrome [None]
  - Pain in extremity [None]
  - Unevaluable event [None]
  - Hemiplegia [None]
  - Breast cancer [None]
  - Balance disorder [None]
  - Incision site pain [None]
  - Cardiovascular disorder [None]
  - Condition aggravated [None]
  - Headache [None]
  - Device deployment issue [None]
  - Breast cancer female [None]
  - Implant site pruritus [None]
  - Post procedural complication [None]
  - Dysstasia [None]
  - Muscle spasticity [None]
  - Asthenia [None]
  - Cerebrospinal fluid leakage [None]
